FAERS Safety Report 18645985 (Version 1)
Quarter: 2020Q4

REPORT INFORMATION
  Report Type: Spontaneous
  Country: US (occurrence: US)
  Receive Date: 20201221
  Receipt Date: 20201221
  Transmission Date: 20210114
  Serious: Yes (Death, Hospitalization)
  Sender: FDA-Public Use
  Company Number: US-BIOMARINAP-US-2020-133980

PATIENT
  Age: 64 Year
  Sex: Male
  Weight: 85.28 kg

DRUGS (1)
  1. NAGLAZYME [Suspect]
     Active Substance: GALSULFASE
     Indication: MUCOPOLYSACCHARIDOSIS VI
     Dosage: 90 MILLIGRAM, QW
     Route: 042

REACTIONS (3)
  - Cough [Unknown]
  - Dehydration [Unknown]
  - Death [Fatal]

NARRATIVE: CASE EVENT DATE: 20201210
